FAERS Safety Report 4580201-2 (Version None)
Quarter: 2005Q1

REPORT INFORMATION
  Report Type: 
  Country: None (occurrence: None)
  Receive Date: 20050209
  Receipt Date: 20050128
  Transmission Date: 20050727
  Serious: Yes (Death)
  Sender: FDA-Public Use
  Company Number: FR-JNJFOC-20050102302

PATIENT
  Sex: Male
  Weight: 80 kg

DRUGS (7)
  1. RISPERDAL [Suspect]
     Indication: SCHIZOPHRENIA
     Route: 049
  2. TERCIAN [Concomitant]
  3. EFFEXOR [Concomitant]
  4. IMOVANE [Concomitant]
  5. CLONAZEPAM [Concomitant]
  6. LEPTICUR [Concomitant]
  7. SULFARLEM [Concomitant]

REACTIONS (6)
  - CARDIAC ARREST [None]
  - DIARRHOEA [None]
  - HYPOTENSION [None]
  - NAUSEA [None]
  - PYREXIA [None]
  - VOMITING [None]
